FAERS Safety Report 13596597 (Version 1)
Quarter: 2017Q2

REPORT INFORMATION
  Report Type: Spontaneous
  Country: US (occurrence: US)
  Receive Date: 20170530
  Receipt Date: 20170530
  Transmission Date: 20170830
  Serious: Yes (Death)
  Sender: FDA-Public Use
  Company Number: None

PATIENT
  Age: 47 Year
  Sex: Male
  Weight: 67.65 kg

DRUGS (3)
  1. OPDIVO [Suspect]
     Active Substance: NIVOLUMAB
     Dates: start: 20160210, end: 20170222
  2. OPDIVO [Suspect]
     Active Substance: NIVOLUMAB
  3. OPDIVO [Suspect]
     Active Substance: NIVOLUMAB

REACTIONS (6)
  - Abdominal distension [None]
  - Decreased appetite [None]
  - Nausea [None]
  - Abnormal loss of weight [None]
  - Constipation [None]
  - Dysuria [None]

NARRATIVE: CASE EVENT DATE: 20170519
